FAERS Safety Report 5224075-5 (Version None)
Quarter: 2007Q1

REPORT INFORMATION
  Report Type: 
  Country: None (occurrence: None)
  Receive Date: 20070130
  Receipt Date: 20070123
  Transmission Date: 20070707
  Serious: Yes (Other)
  Sender: FDA-Public Use
  Company Number: HQWYE298223JAN07

PATIENT
  Sex: Male

DRUGS (3)
  1. CORDARONE [Suspect]
     Indication: ATRIAL FIBRILLATION
     Dosage: 200 MG TABLETS (FREQUENCY UNSPECIFIED)
     Route: 048
     Dates: start: 20050101
  2. METOPROLOL TARTRATE [Concomitant]
     Dosage: UNSPECIFIED
     Route: 048
  3. DIGITALIS TAB [Concomitant]

REACTIONS (3)
  - DRUG EFFECT DECREASED [None]
  - NIGHTMARE [None]
  - SLEEP DISORDER [None]
